FAERS Safety Report 5016899-4 (Version None)
Quarter: 2006Q2

REPORT INFORMATION
  Report Type: 
  Country: None (occurrence: None)
  Receive Date: 20060525
  Receipt Date: 20060503
  Transmission Date: 20061013
  Serious: Yes (Other)
  Sender: FDA-Public Use
  Company Number: 001#1 #2006-00125

PATIENT
  Age: 91 Year
  Sex: Male

DRUGS (6)
  1. ALPROSTADIL [Suspect]
     Indication: PERIPHERAL ARTERIAL OCCLUSIVE DISEASE
     Dosage: 1.20 MCG (20 MCG 1 IN 1 DAY(S)) INTRAVENOUS DRIP
     Route: 041
     Dates: start: 20060503, end: 20060503
  2. SODIUM CHLORIDE [Suspect]
     Dosage: 250 ML (250 ML 1 IN 1 HOUR(S)) INTRAVENOUS
     Route: 042
     Dates: start: 20060503, end: 20060503
  3. VERAPAMIL HCL [Concomitant]
  4. SPIRONOLACTONE (FUROSEMIDE, SPIRONOLACTONE) [Concomitant]
  5. FUROSEMIDE (FUROSEMIDE, SPIRONOLACTONE) [Concomitant]
  6. LISINOPRIL [Concomitant]

REACTIONS (3)
  - ERYTHEMA [None]
  - INFUSION RELATED REACTION [None]
  - URTICARIA [None]
